FAERS Safety Report 17102835 (Version 1)
Quarter: 2019Q4

REPORT INFORMATION
  Report Type: Spontaneous
  Country: US (occurrence: US)
  Receive Date: 20191106
  Receipt Date: 20191106
  Transmission Date: 20200122
  Serious: Yes (Life-Threatening, Hospitalization, Disabling, Congenital Anomaly, Other)
  Sender: FDA-Public Use
  Company Number: None

PATIENT
  Age: 59 Year
  Sex: Male

DRUGS (1)
  1. RAMELTEON TABLETS 8MG [Suspect]
     Active Substance: RAMELTEON
     Indication: INSOMNIA
     Dosage: ?          QUANTITY:1 DF DOSAGE FORM;?
     Route: 048
     Dates: start: 20190801, end: 20191025

REACTIONS (9)
  - Product substitution issue [None]
  - Sleep disorder [None]
  - Rash [None]
  - Hallucination [None]
  - Androgenetic alopecia [None]
  - Obesity [None]
  - Headache [None]
  - Blood testosterone decreased [None]
  - Loss of libido [None]

NARRATIVE: CASE EVENT DATE: 20191029
